FAERS Safety Report 13542395 (Version 1)
Quarter: 2017Q2

REPORT INFORMATION
  Report Type: Spontaneous
  Country: US (occurrence: US)
  Receive Date: 20170512
  Receipt Date: 20170512
  Transmission Date: 20170830
  Serious: Yes (Other)
  Sender: FDA-Public Use
  Company Number: US-ROCHE-801654

PATIENT

DRUGS (1)
  1. AVASTIN [Suspect]
     Active Substance: BEVACIZUMAB
     Indication: MUSCLE ATROPHY
     Route: 065

REACTIONS (4)
  - Pain [Unknown]
  - Eye inflammation [Unknown]
  - Eye irritation [Unknown]
  - Foreign body sensation in eyes [Unknown]
